FAERS Safety Report 8260286-2 (Version None)
Quarter: 2012Q2

REPORT INFORMATION
  Report Type: 
  Country: None (occurrence: None)
  Receive Date: 20120404
  Receipt Date: 20120322
  Transmission Date: 20120825
  Serious: Yes (Hospitalization)
  Sender: FDA-Public Use
  Company Number: CA-ROCHE-1052601

PATIENT
  Sex: Female
  Weight: 63.56 kg

DRUGS (11)
  1. PANTOPRAZOLE SODIUM [Concomitant]
  2. NAPROXEN [Concomitant]
  3. LORAZEPAM [Concomitant]
  4. ZOPICLONE [Concomitant]
  5. HYDROCHLOROTHIAZIDE [Concomitant]
  6. SYNTHROID [Concomitant]
  7. MABTHERA [Suspect]
     Indication: RHEUMATOID ARTHRITIS
     Route: 042
     Dates: start: 20110816
  8. WELLBUTRIN [Concomitant]
  9. MAGNESIUM NOS/ZINC NOS [Concomitant]
  10. VITAMIN B-12 [Concomitant]
  11. ADALAT [Concomitant]

REACTIONS (1)
  - ASTHMA [None]
